FAERS Safety Report 8298911-2 (Version None)
Quarter: 2012Q2

REPORT INFORMATION
  Report Type: 
  Country: None (occurrence: None)
  Receive Date: 20120419
  Receipt Date: 20120416
  Transmission Date: 20120825
  Serious: No
  Sender: FDA-Public Use
  Company Number: US-PFIZER INC-2012094212

PATIENT
  Sex: Male

DRUGS (9)
  1. LORTAB [Concomitant]
     Dosage: 55-500 MG TABLET
  2. COUMADIN [Concomitant]
     Dosage: 4.5 MG
  3. COUMADIN [Concomitant]
     Dosage: 1 MG
  4. NASONEX [Concomitant]
     Dosage: 50 MCG
  5. TRAZODONE [Concomitant]
     Dosage: 50 MG, UNK
  6. COUMADIN [Concomitant]
     Dosage: 4 MG
  7. PROMETHAZINE [Concomitant]
     Dosage: 25 MG, UNK
  8. NEURONTIN [Suspect]
     Dosage: 300 MG, TWO CAPS AT BED TIME
  9. CYCLOBENZAPRINE [Concomitant]
     Dosage: 5 MG, UNK

REACTIONS (2)
  - INSOMNIA [None]
  - BACK PAIN [None]
